FAERS Safety Report 4888121-0 (Version None)
Quarter: 2006Q1

REPORT INFORMATION
  Report Type: 
  Country: None (occurrence: None)
  Receive Date: 20060123
  Receipt Date: 20051017
  Transmission Date: 20060701
  Serious: Yes (Death, Hospitalization)
  Sender: FDA-Public Use
  Company Number: US-MERCK-0510USA07706

PATIENT
  Age: 79 Year
  Sex: Female
  Weight: 52 kg

DRUGS (20)
  1. VIOXX [Suspect]
     Indication: OSTEOARTHRITIS
     Route: 048
     Dates: start: 20000621, end: 20031003
  2. ELIDEL [Concomitant]
     Route: 065
  3. SPIRONOLACTONE [Concomitant]
     Indication: CARDIAC DISORDER
     Route: 065
     Dates: start: 20000601, end: 20031003
  4. LANOXIN [Concomitant]
     Indication: CARDIAC DISORDER
     Route: 065
  5. ZOLOFT [Concomitant]
     Indication: DEPRESSION
     Route: 065
  6. ZOLOFT [Concomitant]
     Indication: ANXIETY
     Route: 065
  7. DEMADEX [Concomitant]
     Indication: OEDEMA
     Route: 065
     Dates: start: 20000601, end: 20031003
  8. CLONAZEPAM [Concomitant]
     Indication: DEPRESSION
     Route: 065
  9. CLONAZEPAM [Concomitant]
     Indication: ANXIETY
     Route: 065
  10. TRAZODONE HYDROCHLORIDE [Concomitant]
     Indication: DEPRESSION
     Route: 065
  11. TRAZODONE HYDROCHLORIDE [Concomitant]
     Indication: ANXIETY
     Route: 065
  12. CYPROHEPTADINE HYDROCHLORIDE [Concomitant]
     Indication: HYPERSENSITIVITY
     Route: 065
  13. TORSEMIDE [Concomitant]
     Indication: CONSTIPATION
     Route: 065
  14. ZYPREXA [Concomitant]
     Indication: ANXIETY
     Route: 065
  15. ZYPREXA [Concomitant]
     Indication: DEPRESSION
     Route: 065
  16. DIGITEK [Concomitant]
     Route: 065
     Dates: start: 19980101, end: 20031003
  17. PENICILLIN VK [Concomitant]
     Route: 065
  18. POTASSIUM CHLORIDE [Concomitant]
     Route: 065
  19. MICRO-K [Concomitant]
     Indication: MINERAL SUPPLEMENTATION
     Route: 065
  20. EVISTA [Concomitant]
     Indication: OSTEOPOROSIS
     Route: 065

REACTIONS (6)
  - DEMENTIA ALZHEIMER'S TYPE [None]
  - FALL [None]
  - HYPOKALAEMIA [None]
  - JAW FRACTURE [None]
  - MYOCARDIAL INFARCTION [None]
  - SYNCOPE [None]
